FAERS Safety Report 24971069 (Version 1)
Quarter: 2025Q1

REPORT INFORMATION
  Report Type: Spontaneous
  Country: ES (occurrence: ES)
  Receive Date: 20250214
  Receipt Date: 20250214
  Transmission Date: 20250409
  Serious: Yes (Hospitalization, Other)
  Sender: INSUD PHARMA
  Company Number: ES-EXELTIS PHARMACEUTICAL HOLDING, S.L.-2502ES00845

PATIENT
  Age: 44 Year
  Sex: Female

DRUGS (2)
  1. DROSPIRENONE [Suspect]
     Active Substance: DROSPIRENONE
     Indication: Contraception
     Dosage: 4 MILLIGRAM, QD
     Route: 048
     Dates: start: 20241202, end: 202501
  2. FERROUS SULFATE [Concomitant]
     Active Substance: FERROUS SULFATE
     Dates: start: 20241028

REACTIONS (1)
  - Pulmonary embolism [Recovering/Resolving]
